FAERS Safety Report 19350116 (Version 1)
Quarter: 2021Q2

REPORT INFORMATION
  Report Type: Spontaneous
  Country: JP (occurrence: JP)
  Receive Date: 20210531
  Receipt Date: 20210531
  Transmission Date: 20210717
  Serious: Yes (Other)
  Sender: FDA-Public Use
  Company Number: JP-SA-2021SA110842

PATIENT
  Sex: Male

DRUGS (3)
  1. LYXUMIA [Suspect]
     Active Substance: LIXISENATIDE
     Dosage: ADDITIONAL 20 UG
     Route: 058
  2. LYXUMIA [Suspect]
     Active Substance: LIXISENATIDE
     Indication: DIABETES MELLITUS
     Dosage: 10 UG, BID, MORNING AND NOON
     Route: 058
  3. INSULIN [Concomitant]
     Active Substance: INSULIN NOS
     Indication: DIABETES MELLITUS
     Route: 065

REACTIONS (9)
  - Mental impairment [Unknown]
  - Blood glucose abnormal [Unknown]
  - Intentional overdose [Unknown]
  - Loss of control of legs [Unknown]
  - Inappropriate schedule of product administration [Unknown]
  - Hypoglycaemia [Unknown]
  - Amnestic disorder [Unknown]
  - Musculoskeletal stiffness [Unknown]
  - Feeling abnormal [Unknown]
